FAERS Safety Report 7201288-4 (Version None)
Quarter: 2010Q4

REPORT INFORMATION
  Report Type: 
  Country: None (occurrence: None)
  Receive Date: 20101227
  Receipt Date: 20101227
  Transmission Date: 20110411
  Serious: Yes (Death)
  Sender: FDA-Public Use
  Company Number: None

PATIENT
  Age: 20 Year
  Sex: Female
  Weight: 80 kg

DRUGS (1)
  1. TYGACIL [Suspect]
     Dosage: IV
     Route: 042
     Dates: start: 20101213, end: 20101214

REACTIONS (11)
  - ABNORMAL DREAMS [None]
  - BODY TEMPERATURE INCREASED [None]
  - CONFUSIONAL STATE [None]
  - DYSKINESIA [None]
  - EYE ROLLING [None]
  - HEADACHE [None]
  - LOCAL SWELLING [None]
  - PANIC DISORDER [None]
  - PHARYNGEAL OEDEMA [None]
  - PUPILS UNEQUAL [None]
  - SCREAMING [None]
